FAERS Safety Report 4955717-7 (Version None)
Quarter: 2006Q1

REPORT INFORMATION
  Report Type: 
  Country: None (occurrence: None)
  Receive Date: 20060328
  Receipt Date: 20051107
  Transmission Date: 20060701
  Serious: Yes (Hospitalization)
  Sender: FDA-Public Use
  Company Number: DE-ROCHE-423713

PATIENT
  Age: 64 Year
  Sex: Female
  Weight: 110 kg

DRUGS (8)
  1. PEG-INTERFERON A-2A (RO 25-8310) [Suspect]
     Route: 058
     Dates: start: 20050202
  2. RIBAVIRIN [Suspect]
     Route: 048
     Dates: start: 20050202
  3. AMANTADINE HCL [Suspect]
     Route: 048
     Dates: start: 20050120
  4. LISINOPRIL [Concomitant]
     Dates: start: 20050112
  5. LEVOTHYROXINE SODIUM [Concomitant]
     Dates: start: 20050112
  6. ALLOPURINOL [Concomitant]
     Dates: start: 20050112
  7. HYDROCHLOROTHIAZID [Concomitant]
     Dates: start: 20050112
  8. IBUPROFEN [Concomitant]
     Dates: start: 20050222

REACTIONS (8)
  - ALVEOLITIS [None]
  - ARTHRALGIA [None]
  - DRUG INEFFECTIVE [None]
  - GENERAL PHYSICAL CONDITION ABNORMAL [None]
  - NAUSEA [None]
  - PNEUMONITIS [None]
  - POLYARTHRITIS [None]
  - VOMITING [None]
